FAERS Safety Report 8509907-7 (Version None)
Quarter: 2012Q3

REPORT INFORMATION
  Report Type: 
  Country: None (occurrence: None)
  Receive Date: 20120713
  Receipt Date: 20120706
  Transmission Date: 20120928
  Serious: Yes (Hospitalization, Other)
  Sender: FDA-Public Use
  Company Number: IT-JNJFOC-20120515966

PATIENT
  Sex: Male

DRUGS (5)
  1. CHLORPROMAZINE HCL [Concomitant]
     Indication: ACUTE PSYCHOSIS
     Route: 048
  2. FLUOXETINE HYDROCHLORIDE [Concomitant]
     Indication: ACUTE PSYCHOSIS
     Route: 048
  3. HALDOL [Suspect]
     Indication: PRODUCT USED FOR UNKNOWN INDICATION
     Route: 048
     Dates: start: 20120517, end: 20120517
  4. ZYPREXA [Concomitant]
     Indication: ACUTE PSYCHOSIS
     Route: 048
  5. CHLORPROMAZINE HCL [Concomitant]
     Indication: ACUTE PSYCHOSIS
     Route: 048

REACTIONS (2)
  - MUSCLE CONTRACTIONS INVOLUNTARY [None]
  - SELF INJURIOUS BEHAVIOUR [None]
